FAERS Safety Report 19674137 (Version 1)
Quarter: 2021Q3

REPORT INFORMATION
  Report Type: Spontaneous
  Country: US (occurrence: US)
  Receive Date: 20210809
  Receipt Date: 20210809
  Transmission Date: 20211014
  Serious: Yes (Hospitalization)
  Sender: FDA-Public Use
  Company Number: None

PATIENT
  Age: 40 Year
  Sex: Male

DRUGS (5)
  1. TACROLIMUS. [Suspect]
     Active Substance: TACROLIMUS
     Indication: RENAL TRANSPLANT
     Dosage: ?          OTHER FREQUENCY:EVERY 12 HOURS;?
     Route: 048
     Dates: start: 20190401
  2. MYCOPHENOLIC [Concomitant]
     Active Substance: MYCOPHENOLIC ACID
  3. RENVELA [Concomitant]
     Active Substance: SEVELAMER CARBONATE
  4. PROCARDIA [Concomitant]
     Active Substance: NIFEDIPINE
  5. RENAL [Concomitant]

REACTIONS (2)
  - Accident at work [None]
  - Cerebral haemorrhage [None]

NARRATIVE: CASE EVENT DATE: 20210803
